FAERS Safety Report 9640286 (Version 3)
Quarter: 2014Q1

REPORT INFORMATION
  Report Type: Spontaneous
  Country: CA (occurrence: CA)
  Receive Date: 20131023
  Receipt Date: 20140122
  Transmission Date: 20141002
  Serious: Yes (Other)
  Sender: FDA-Public Use
  Company Number: CA-BAYER-2013-128439

PATIENT
  Age: 49 Year
  Sex: Female

DRUGS (1)
  1. BETASERON [Suspect]
     Indication: RELAPSING-REMITTING MULTIPLE SCLEROSIS
     Dosage: UNK UNK, UNK
     Dates: start: 1990

REACTIONS (6)
  - Multiple sclerosis relapse [None]
  - Muscular weakness [None]
  - Multiple sclerosis relapse [None]
  - Drug ineffective [None]
  - Multiple sclerosis relapse [None]
  - Injection site pain [None]
